FAERS Safety Report 4448431-8 (Version None)
Quarter: 2004Q3

REPORT INFORMATION
  Report Type: 
  Country: None (occurrence: None)
  Receive Date: 20040909
  Receipt Date: 20040909
  Transmission Date: 20050211
  Serious: Yes (Life-Threatening, Hospitalization, Disabling)
  Sender: FDA-Public Use
  Company Number: None

PATIENT
  Age: 21 Year
  Sex: Female
  Weight: 43.0917 kg

DRUGS (3)
  1. XANAX [Suspect]
     Indication: ANXIETY
     Dosage: ONCE DAILY ORAL
     Route: 048
  2. XANAX [Suspect]
     Indication: DEPRESSION
     Dosage: ONCE DAILY ORAL
     Route: 048
  3. XANAX [Suspect]
     Indication: STRESS SYMPTOMS
     Dosage: ONCE DAILY ORAL
     Route: 048

REACTIONS (11)
  - ANXIETY [None]
  - APATHY [None]
  - CONDITION AGGRAVATED [None]
  - DEPRESSION [None]
  - DRUG INEFFECTIVE [None]
  - LACERATION [None]
  - LOSS OF CONSCIOUSNESS [None]
  - OVERDOSE [None]
  - PAIN [None]
  - SELF INJURIOUS BEHAVIOUR [None]
  - SUICIDAL IDEATION [None]
